FAERS Safety Report 12612211 (Version 2)
Quarter: 2016Q3

REPORT INFORMATION
  Report Type: Report from Study
  Country: RU (occurrence: RU)
  Receive Date: 20160801
  Receipt Date: 20160819
  Transmission Date: 20161109
  Serious: Yes (Hospitalization, Other)
  Sender: FDA-Public Use
  Company Number: PHHY2013RU176040

PATIENT
  Age: 64 Year
  Sex: Male

DRUGS (2)
  1. NO TREATMENT RECEIVED [Suspect]
     Active Substance: UNSPECIFIED INGREDIENT
     Indication: PRODUCT USED FOR UNKNOWN INDICATION
     Route: 065
  2. TASIGNA [Suspect]
     Active Substance: NILOTINIB
     Indication: CHRONIC MYELOID LEUKAEMIA
     Dosage: 800 MG, QD
     Route: 048
     Dates: start: 20070603, end: 20120916

REACTIONS (4)
  - Hemiparesis [Unknown]
  - Peripheral artery occlusion [Unknown]
  - Cerebral ischaemia [Recovering/Resolving]
  - Peripheral artery stenosis [Unknown]

NARRATIVE: CASE EVENT DATE: 20120916
